FAERS Safety Report 5866949-8 (Version None)
Quarter: 2008Q3

REPORT INFORMATION
  Report Type: 
  Country: None (occurrence: None)
  Receive Date: 20080902
  Receipt Date: 20080828
  Transmission Date: 20090109
  Serious: Yes (Other)
  Sender: FDA-Public Use
  Company Number: A0735731A

PATIENT
  Age: 50 Year
  Sex: Male

DRUGS (1)
  1. ALLI [Suspect]
     Route: 048
     Dates: start: 20080601

REACTIONS (7)
  - ABDOMINAL PAIN [None]
  - ANEURYSM [None]
  - CARDIAC DISORDER [None]
  - DIARRHOEA [None]
  - HEADACHE [None]
  - MYOCARDIAL INFARCTION [None]
  - PAIN IN EXTREMITY [None]
